FAERS Safety Report 15451931 (Version 1)
Quarter: 2018Q3

REPORT INFORMATION
  Report Type: Spontaneous
  Country: US (occurrence: US)
  Receive Date: 20180927
  Receipt Date: 20180927
  Transmission Date: 20181010
  Serious: Yes (Life-Threatening, Hospitalization)
  Sender: FDA-Public Use
  Company Number: None

PATIENT
  Age: 58 Year
  Sex: Female
  Weight: 77 kg

DRUGS (1)
  1. REGEN [Suspect]
     Active Substance: MINOXIDIL
     Indication: ARTHRITIS
     Dosage: ?          OTHER FREQUENCY:ONCE;OTHER ROUTE:HIP INJECTION?
     Dates: start: 20180808, end: 20180808

REACTIONS (2)
  - Infection [None]
  - Arthritis bacterial [None]

NARRATIVE: CASE EVENT DATE: 20180808
